FAERS Safety Report 8009278-9 (Version None)
Quarter: 2011Q4

REPORT INFORMATION
  Report Type: 
  Country: None (occurrence: None)
  Receive Date: 20111227
  Receipt Date: 20111219
  Transmission Date: 20120403
  Serious: Yes (Other)
  Sender: FDA-Public Use
  Company Number: US-JNJFOC-20111209098

PATIENT
  Sex: Male
  Weight: 77.11 kg

DRUGS (1)
  1. NEUTROGENA T/GEL THERAPEUTIC SHAMPOO ORIGINAL FORMULA [Suspect]
     Indication: DANDRUFF
     Dosage: DOUBLE QUARTER-SIZE APPLICATION ONCE EVERY 2 DAYS
     Route: 061

REACTIONS (6)
  - EYE PAIN [None]
  - OCULAR HYPERAEMIA [None]
  - OPEN WOUND [None]
  - SCAB [None]
  - PRODUCT FORMULATION ISSUE [None]
  - DANDRUFF [None]
